FAERS Safety Report 10704698 (Version 1)
Quarter: 2014Q4

REPORT INFORMATION
  Report Type: Report from Study
  Country: US (occurrence: None)
  Receive Date: 20141224
  Receipt Date: 20141224
  Transmission Date: 20150529
  Serious: No
  Sender: FDA-Public Use
  Company Number: CABO-14004701

PATIENT
  Age: 66 Year
  Sex: Male

DRUGS (5)
  1. CIPROFLOXACIN (CIPROFLOXACIN) [Concomitant]
     Active Substance: CIPROFLOXACIN
  2. TYLENOL [Concomitant]
     Active Substance: ACETAMINOPHEN
  3. WARFARIN (WARFARIN) [Concomitant]
     Active Substance: WARFARIN
  4. COMETRIQ [Suspect]
     Active Substance: CABOZANTINIB S-MALATE
     Indication: PROSTATE CANCER
     Route: 048
     Dates: start: 20140808
  5. VITAMIN D (COLECALCIFEROL) [Concomitant]

REACTIONS (6)
  - Pain in extremity [None]
  - Off label use [None]
  - Hand-foot-and-mouth disease [None]
  - Nausea [None]
  - Vomiting [None]
  - Diarrhoea [None]

NARRATIVE: CASE EVENT DATE: 2014
